FAERS Safety Report 5188323-2 (Version None)
Quarter: 2006Q4

REPORT INFORMATION
  Report Type: 
  Country: None (occurrence: None)
  Receive Date: 20061221
  Receipt Date: 20061211
  Transmission Date: 20070319
  Serious: Yes (Hospitalization, Other)
  Sender: FDA-Public Use
  Company Number: US-ELI_LILLY_AND_COMPANY-US200612002366

PATIENT
  Age: 70 Year
  Sex: Female

DRUGS (2)
  1. FORTEO [Suspect]
     Indication: OSTEOPOROSIS
     Dates: start: 20040901
  2. PROCRIT [Concomitant]
     Indication: ANAEMIA

REACTIONS (6)
  - ANAEMIA [None]
  - CAPILLARY FRAGILITY [None]
  - FALL [None]
  - INJECTION SITE HAEMORRHAGE [None]
  - MALNUTRITION [None]
  - PHARMACEUTICAL PRODUCT COMPLAINT [None]
